FAERS Safety Report 8062211-6 (Version None)
Quarter: 2012Q1

REPORT INFORMATION
  Report Type: 
  Country: None (occurrence: None)
  Receive Date: 20120120
  Receipt Date: 20120120
  Transmission Date: 20120608
  Serious: Yes (Death)
  Sender: FDA-Public Use
  Company Number: None

PATIENT
  Age: 84 Year
  Sex: Female

DRUGS (13)
  1. LETAIRIS [Suspect]
     Indication: PULMONARY HYPERTENSION
     Dosage: 5MG QD ORALLY
     Route: 048
     Dates: start: 20111223, end: 20120103
  2. PREDNISONE [Concomitant]
  3. ONDANSETRON [Concomitant]
  4. MORPHINE [Concomitant]
  5. LASIX [Concomitant]
  6. MEVACOR [Concomitant]
  7. ATROPINE [Concomitant]
  8. AGGRENOX [Concomitant]
  9. INDERAL [Concomitant]
  10. COMPAZINE [Concomitant]
  11. ATIVAN [Concomitant]
  12. LEVOTHROID [Concomitant]
  13. DURAGESIC-100 [Concomitant]

REACTIONS (2)
  - FEELING ABNORMAL [None]
  - NO THERAPEUTIC RESPONSE [None]
